FAERS Safety Report 20009009 (Version 2)
Quarter: 2021Q4

REPORT INFORMATION
  Report Type: Spontaneous
  Country: US (occurrence: US)
  Receive Date: 20211028
  Receipt Date: 20211104
  Transmission Date: 20220303
  Serious: Yes (Other)
  Sender: FDA-Public Use
  Company Number: US-PFIZER INC-202101414190

PATIENT
  Age: 78 Year
  Sex: Female

DRUGS (3)
  1. DOXORUBICIN HYDROCHLORIDE [Suspect]
     Active Substance: DOXORUBICIN HYDROCHLORIDE
     Indication: Anaplastic thyroid cancer
     Dosage: UNK, CYCLIC
  2. CISPLATIN [Suspect]
     Active Substance: CISPLATIN
     Indication: Anaplastic thyroid cancer
     Dosage: UNK, CYCLIC
  3. FOSBRETABULIN [Suspect]
     Active Substance: FOSBRETABULIN
     Indication: Anaplastic thyroid cancer
     Dosage: UNK, CYCLIC

REACTIONS (1)
  - Stress cardiomyopathy [Unknown]
